FAERS Safety Report 18890032 (Version 1)
Quarter: 2021Q1

REPORT INFORMATION
  Report Type: Spontaneous
  Country: US (occurrence: US)
  Receive Date: 20210214
  Receipt Date: 20210214
  Transmission Date: 20210420
  Serious: No
  Sender: FDA-Public Use
  Company Number: US-TEVA-2021-US-1876833

PATIENT
  Sex: Male

DRUGS (1)
  1. ALBUTEROL SULFATE HFA [Suspect]
     Active Substance: ALBUTEROL SULFATE
     Dosage: INHALATION ? AEROSOL
     Route: 065
     Dates: start: 20210127

REACTIONS (3)
  - Discomfort [Unknown]
  - Dyspnoea [Unknown]
  - Tinnitus [Unknown]

NARRATIVE: CASE EVENT DATE: 20210127
